FAERS Safety Report 6956030-9 (Version None)
Quarter: 2010Q3

REPORT INFORMATION
  Report Type: 
  Country: None (occurrence: None)
  Receive Date: 20100826
  Receipt Date: 20100819
  Transmission Date: 20110219
  Serious: Yes (Other)
  Sender: FDA-Public Use
  Company Number: 675206

PATIENT
  Age: 55 Year
  Sex: Male

DRUGS (5)
  1. PACLITAXEL [Suspect]
     Indication: CHEMOTHERAPY
     Dosage: 160 MG MILLIGRAM(A)  INTRAVENOUS
     Route: 042
     Dates: start: 20100729, end: 20100729
  2. (BEVACIZUMAB) [Concomitant]
  3. (CHLORPHENAMINE) [Concomitant]
  4. (DEXAMETASONE) [Concomitant]
  5. RANITIDINE [Concomitant]

REACTIONS (2)
  - DYSPNOEA [None]
  - LOSS OF CONSCIOUSNESS [None]
